FAERS Safety Report 8848789 (Version 1)
Quarter: 2012Q4

REPORT INFORMATION
  Report Type: Spontaneous
  Country: TR (occurrence: None)
  Receive Date: 20121016
  Receipt Date: 20121016
  Transmission Date: 20130627
  Serious: Yes (Hospitalization, Other)
  Sender: FDA-Public Use
  Company Number: FK201203001

PATIENT
  Age: 55 Month
  Sex: Male

DRUGS (2)
  1. VALPROATE [Suspect]
     Indication: FRONTOTEMPORAL DEMENTIA
  2. CARBAMAZEPIN (CARBAMAZEPINE) [Concomitant]

REACTIONS (3)
  - Kluver-Bucy syndrome [None]
  - Frontotemporal dementia [None]
  - Cerebral hypoperfusion [None]
